FAERS Safety Report 8860711 (Version 2)
Quarter: 2012Q4

REPORT INFORMATION
  Report Type: 
  Country: DE (occurrence: DE)
  Receive Date: 20121025
  Receipt Date: 20121224
  Transmission Date: 20130627
  Serious: Yes (Hospitalization, Other)
  Sender: FDA-Public Use
  Company Number: DE-ROCHE-1148610

PATIENT
  Age: 28 Year
  Sex: Female
  Weight: 78 kg

DRUGS (9)
  1. MABTHERA [Suspect]
     Indication: SYSTEMIC LUPUS ERYTHEMATOSUS
     Route: 042
     Dates: start: 20121018, end: 20121018
  2. MABTHERA [Suspect]
     Indication: SJOGREN^S SYNDROME
  3. MABTHERA [Suspect]
     Indication: OFF LABEL USE
  4. PREDNISOLON [Concomitant]
     Indication: SYSTEMIC LUPUS ERYTHEMATOSUS
     Route: 042
     Dates: start: 20121018, end: 20121018
  5. HYDROXYCHLOROQUINE [Concomitant]
     Route: 048
     Dates: start: 1998
  6. OMEPRAZOL [Concomitant]
     Indication: GASTRITIS
     Route: 048
     Dates: start: 20121008
  7. MTX [Concomitant]
     Indication: SYSTEMIC LUPUS ERYTHEMATOSUS
     Route: 048
     Dates: start: 1998
  8. FOLIC ACID [Concomitant]
     Indication: SYSTEMIC LUPUS ERYTHEMATOSUS
     Route: 048
     Dates: start: 1998
  9. PARACETAMOL [Concomitant]
     Indication: PAIN
     Route: 065
     Dates: start: 20121008

REACTIONS (3)
  - Nervous system disorder [Unknown]
  - Loss of consciousness [Recovered/Resolved]
  - Epilepsy [Recovered/Resolved]
